FAERS Safety Report 6654340-6 (Version None)
Quarter: 2010Q1

REPORT INFORMATION
  Report Type: 
  Country: None (occurrence: None)
  Receive Date: 20100326
  Receipt Date: 20100315
  Transmission Date: 20100710
  Serious: No
  Sender: FDA-Public Use
  Company Number: B0640500A

PATIENT
  Sex: Female
  Weight: 55 kg

DRUGS (1)
  1. RELENZA [Suspect]
     Indication: INFLUENZA
     Dosage: 20MG PER DAY
     Route: 055
     Dates: start: 20091108, end: 20091111

REACTIONS (1)
  - DRUG EXPOSURE DURING PREGNANCY [None]
